FAERS Safety Report 10251146 (Version 1)
Quarter: 2014Q2

REPORT INFORMATION
  Report Type: Spontaneous
  Country: FR (occurrence: FR)
  Receive Date: 20140620
  Receipt Date: 20140620
  Transmission Date: 20141212
  Serious: Yes (Life-Threatening, Hospitalization, Other)
  Sender: FDA-Public Use
  Company Number: FR-ASTRAZENECA-2014SE45082

PATIENT
  Age: 45 Year
  Sex: Female

DRUGS (9)
  1. INEXIUM [Suspect]
     Route: 048
     Dates: start: 20140414, end: 20140414
  2. CRESTOR [Suspect]
     Route: 048
     Dates: start: 20140414, end: 20140414
  3. RAMIPRIL [Suspect]
     Route: 048
     Dates: start: 20140414, end: 20140414
  4. PARACETAMOL [Suspect]
     Route: 048
     Dates: start: 20140414, end: 20140414
  5. ISOPTINE SR [Suspect]
     Route: 048
     Dates: start: 20140414, end: 20140414
  6. DUOPLAVIN [Suspect]
     Route: 048
     Dates: start: 20140414, end: 20140414
  7. ZYLORIC [Suspect]
     Route: 048
     Dates: start: 20140414, end: 20140414
  8. STILNOX [Concomitant]
  9. DIETARY SUPPLEMENT [Concomitant]

REACTIONS (17)
  - Suicide attempt [Unknown]
  - Cardiogenic shock [Recovered/Resolved]
  - Shock [Recovered/Resolved]
  - Coma [Unknown]
  - Sinus arrhythmia [Unknown]
  - Lactic acidosis [Unknown]
  - Acute respiratory failure [Unknown]
  - Pneumonia aspiration [Unknown]
  - Bundle branch block left [Unknown]
  - Renal failure [Unknown]
  - Blood creatinine increased [Unknown]
  - PO2 increased [Unknown]
  - Hypokalaemia [Unknown]
  - Blood creatine phosphokinase increased [Unknown]
  - Bradycardia [None]
  - Leukocytosis [None]
  - Neutrophilia [None]
